FAERS Safety Report 9431155 (Version 4)
Quarter: 2013Q3

REPORT INFORMATION
  Report Type: Spontaneous
  Country: US (occurrence: US)
  Receive Date: 20130730
  Receipt Date: 20130819
  Transmission Date: 20140515
  Serious: Yes (Hospitalization)
  Sender: FDA-Public Use
  Company Number: US-BAXTER-2013BAX029507

PATIENT
  Age: 57 Year
  Sex: Female

DRUGS (3)
  1. DIANEAL LOW CALCIUM [Suspect]
     Indication: PERITONEAL DIALYSIS
     Route: 033
     Dates: start: 20130516
  2. DIANEAL LOW CALCIUM [Suspect]
     Indication: PERITONEAL DIALYSIS
     Route: 033
     Dates: start: 20130516
  3. COUMADIN [Suspect]
     Indication: CARDIAC DISORDER
     Route: 065
     Dates: end: 20130721

REACTIONS (3)
  - Cerebral haemorrhage [Recovering/Resolving]
  - Migraine [Recovering/Resolving]
  - Anaemia [Recovering/Resolving]
